FAERS Safety Report 4487785-3 (Version None)
Quarter: 2004Q4

REPORT INFORMATION
  Report Type: 
  Country: None (occurrence: None)
  Receive Date: 20041027
  Receipt Date: 20041027
  Transmission Date: 20050328
  Serious: Yes (Other)
  Sender: FDA-Public Use
  Company Number: None

PATIENT
  Sex: Female
  Weight: 133.8111 kg

DRUGS (4)
  1. CELEXA [Suspect]
     Indication: CRYING
     Dosage: 40 MG   DAY   ORAL
     Route: 048
     Dates: start: 19970815, end: 20040904
  2. CELEXA [Suspect]
     Indication: DEPRESSION
     Dosage: 40 MG   DAY   ORAL
     Route: 048
     Dates: start: 19970815, end: 20040904
  3. CELEXA [Suspect]
     Indication: DIVORCED
     Dosage: 40 MG   DAY   ORAL
     Route: 048
     Dates: start: 19970815, end: 20040904
  4. WELLBUTRIN SR [Concomitant]

REACTIONS (6)
  - ANGER [None]
  - DEPRESSION [None]
  - DIZZINESS [None]
  - INFLUENZA LIKE ILLNESS [None]
  - NAUSEA [None]
  - VOMITING [None]
